FAERS Safety Report 21732912 (Version 7)
Quarter: 2024Q2

REPORT INFORMATION
  Report Type: Spontaneous
  Country: US (occurrence: US)
  Receive Date: 20221215
  Receipt Date: 20240510
  Transmission Date: 20240716
  Serious: Yes (Other)
  Sender: FDA-Public Use
  Company Number: US-AMICUS-AMI_1573AA

PATIENT
  Age: 70 Year
  Sex: Female
  Weight: 62.585 kg

DRUGS (5)
  1. GALAFOLD [Suspect]
     Active Substance: MIGALASTAT HYDROCHLORIDE
     Indication: Fabry^s disease
     Dosage: 123 MILLIGRAM, QOD
     Route: 048
     Dates: start: 20210409, end: 202211
  2. GALAFOLD [Suspect]
     Active Substance: MIGALASTAT HYDROCHLORIDE
     Dosage: 123 MILLIGRAM, EVERY 4TH DAY
     Route: 048
     Dates: start: 20221128
  3. GALAFOLD [Suspect]
     Active Substance: MIGALASTAT HYDROCHLORIDE
     Dosage: 123 MILLIGRAM, QOD
     Route: 048
  4. SINGULAIR [Concomitant]
     Active Substance: MONTELUKAST SODIUM
     Indication: Product used for unknown indication
     Dosage: 10 MILLIGRAM
     Route: 065
  5. SYNTHROID [Concomitant]
     Active Substance: LEVOTHYROXINE SODIUM
     Indication: Product used for unknown indication
     Dosage: 112 MICROGRAM
     Route: 065

REACTIONS (24)
  - Thrombosis [Recovering/Resolving]
  - Rhinitis [Recovered/Resolved]
  - Headache [Recovered/Resolved]
  - Transient ischaemic attack [Recovered/Resolved]
  - Vaginal discharge [Recovering/Resolving]
  - Nasal congestion [Recovered/Resolved]
  - Nasal congestion [Recovering/Resolving]
  - Arteriosclerosis [Unknown]
  - Heart valve incompetence [Unknown]
  - Urinary tract infection [Recovering/Resolving]
  - Weight decreased [Unknown]
  - Pyrexia [Recovered/Resolved]
  - Rhinorrhoea [Recovering/Resolving]
  - Dizziness [Recovering/Resolving]
  - Fatigue [Unknown]
  - Nausea [Recovered/Resolved]
  - Abdominal pain [Recovering/Resolving]
  - Inappropriate schedule of product administration [Unknown]
  - Inappropriate schedule of product administration [Recovered/Resolved]
  - Product dose omission in error [Recovered/Resolved]
  - Dyspnoea [Unknown]
  - Heart rate increased [Recovered/Resolved]
  - Pain [Recovered/Resolved]
  - Hypertension [Recovered/Resolved]

NARRATIVE: CASE EVENT DATE: 20210501
